FAERS Safety Report 8340595-9 (Version None)
Quarter: 2012Q2

REPORT INFORMATION
  Report Type: 
  Country: None (occurrence: None)
  Receive Date: 20120507
  Receipt Date: 20120502
  Transmission Date: 20120825
  Serious: Yes (Hospitalization)
  Sender: FDA-Public Use
  Company Number: CN-ROCHE-1065113

PATIENT
  Age: 42 Year
  Sex: Male
  Weight: 50 kg

DRUGS (1)
  1. HERCEPTIN [Suspect]
     Indication: METASTATIC GASTRIC CANCER
     Dates: start: 20111101, end: 20120201

REACTIONS (2)
  - OCULAR HYPERTENSION [None]
  - PARONYCHIA [None]
